FAERS Safety Report 10181368 (Version 3)
Quarter: 2014Q2

REPORT INFORMATION
  Report Type: Spontaneous
  Country: US (occurrence: US)
  Receive Date: 20140519
  Receipt Date: 20140625
  Transmission Date: 20141212
  Serious: Yes (Hospitalization, Disabling)
  Sender: FDA-Public Use
  Company Number: US-AMGEN-USASP2014033818

PATIENT
  Age: 62 Year
  Sex: Female
  Weight: 59.86 kg

DRUGS (8)
  1. PROLIA [Suspect]
     Indication: OSTEOPOROSIS POSTMENOPAUSAL
     Dosage: 60 MG/ML, ONCE, Q6MO
     Route: 058
     Dates: start: 20140425
  2. VITAMIN D                          /00107901/ [Concomitant]
     Dosage: 2000 UNIT, QD
     Route: 065
     Dates: start: 20100305
  3. CALCIUM [Concomitant]
     Indication: HYPOCALCAEMIA
     Dosage: 500 MG, BID
     Route: 042
     Dates: start: 20120910
  4. LEVEMIR [Concomitant]
     Indication: TYPE 2 DIABETES MELLITUS
     Dosage: 14 UNIT, QHS
     Route: 058
     Dates: start: 20130606
  5. CELEXA                             /00582602/ [Concomitant]
     Indication: DEPRESSION
     Dosage: 40 MG, QD
     Route: 048
     Dates: start: 20120821
  6. XANAX [Concomitant]
     Indication: ANXIETY
     Dosage: 0.5 MG, BID, AS NECESSARY
     Route: 048
  7. VITAMIN D3 [Concomitant]
     Dosage: 2000 MG (1000 MG X2), QD
  8. NEXIUM                             /01479302/ [Concomitant]
     Indication: GASTROOESOPHAGEAL REFLUX DISEASE
     Dosage: 40 MG, QD
     Route: 048
     Dates: start: 20140327

REACTIONS (6)
  - Anxiety [Recovering/Resolving]
  - Agitation [Recovering/Resolving]
  - Nervousness [Recovering/Resolving]
  - Arthralgia [Recovering/Resolving]
  - Hypocalcaemia [Not Recovered/Not Resolved]
  - Depressed mood [Unknown]
